FAERS Safety Report 16475380 (Version 6)
Quarter: 2020Q4

REPORT INFORMATION
  Report Type: Spontaneous
  Country: US (occurrence: US)
  Receive Date: 20190625
  Receipt Date: 20201217
  Transmission Date: 20210113
  Serious: No
  Sender: FDA-Public Use
  Company Number: US-SA-2019SA172025

PATIENT

DRUGS (1)
  1. DUPIXENT [Suspect]
     Active Substance: DUPILUMAB
     Indication: DERMATITIS ATOPIC
     Dosage: 300 MG, QOW
     Route: 058
     Dates: start: 20190216

REACTIONS (11)
  - Injection site haemorrhage [Unknown]
  - Pruritus [Unknown]
  - Skin swelling [Unknown]
  - Skin haemorrhage [Unknown]
  - Drug ineffective [Unknown]
  - Dermatitis atopic [Unknown]
  - Wrong technique in device usage process [Unknown]
  - Dry skin [Unknown]
  - Scratch [Not Recovered/Not Resolved]
  - Pruritus [Recovered/Resolved]
  - Scab [Unknown]

NARRATIVE: CASE EVENT DATE: 20200309
